FAERS Safety Report 9340361 (Version 1)
Quarter: 2013Q2

REPORT INFORMATION
  Report Type: Spontaneous
  Country: DE (occurrence: DE)
  Receive Date: 20130610
  Receipt Date: 20130610
  Transmission Date: 20140414
  Serious: Yes (Congenital Anomaly, Other)
  Sender: FDA-Public Use
  Company Number: DE-UCBSA-087439

PATIENT
  Age: 0 Year
  Sex: Male
  Weight: 4.88 kg

DRUGS (8)
  1. KEPPRA [Suspect]
     Indication: EPILEPSY
     Route: 064
     Dates: start: 20110820, end: 20120511
  2. LAMOTRIGIN [Suspect]
     Indication: EPILEPSY
     Route: 064
     Dates: start: 20110820, end: 20120511
  3. SEROQUEL [Suspect]
     Indication: BORDERLINE PERSONALITY DISORDER
     Route: 064
     Dates: start: 20110820, end: 20120511
  4. RIVOTRIL [Suspect]
     Indication: BORDERLINE PERSONALITY DISORDER
     Dosage: DAILY DOSE: 0.5 MG
     Route: 064
     Dates: start: 20110820, end: 20120315
  5. EUTHYROX [Concomitant]
     Indication: HYPOTHYROIDISM
     Dosage: DAILY DOSE: 150 MCG
     Route: 064
     Dates: start: 20110820, end: 20120511
  6. STANGYL [Concomitant]
     Indication: BORDERLINE PERSONALITY DISORDER
     Dosage: DAILY DOSE: 100 MG
     Route: 064
     Dates: start: 20110820, end: 20111215
  7. HEROIN [Concomitant]
     Indication: DRUG ABUSE
     Dosage: TRIMESTER: 1ST + 2ND
     Route: 064
  8. CANNABIS [Concomitant]
     Indication: DRUG ABUSE
     Dosage: TRIMESTER: 1ST+ 2ND
     Route: 064

REACTIONS (5)
  - Neonatal respiratory distress syndrome [Recovered/Resolved]
  - Withdrawal syndrome [Recovered/Resolved]
  - Convulsion [Recovered/Resolved]
  - Dysmorphism [Unknown]
  - Foetal exposure during pregnancy [Recovered/Resolved]
